FAERS Safety Report 8157845-4 (Version None)
Quarter: 2012Q1

REPORT INFORMATION
  Report Type: 
  Country: None (occurrence: None)
  Receive Date: 20120222
  Receipt Date: 20120216
  Transmission Date: 20120608
  Serious: Yes (Hospitalization)
  Sender: FDA-Public Use
  Company Number: JP-PFIZER INC-2011254522

PATIENT
  Age: 72 Year
  Sex: Female
  Weight: 40 kg

DRUGS (12)
  1. PREDNISOLONE [Concomitant]
     Dosage: 10 MG, 1X/DAY
     Route: 048
  2. CARELOAD LA [Concomitant]
     Dosage: 60 UG, 2X/DAY
     Route: 048
     Dates: start: 20100107
  3. SULFAMETHOXAZOLE [Concomitant]
     Dosage: 1 DF, 3X/WEEK
     Route: 048
  4. LANSOPRAZOLE [Concomitant]
     Dosage: 15 MG, 1X/DAY
     Route: 048
  5. REVATIO [Suspect]
     Indication: PULMONARY HYPERTENSION
     Dosage: 20 MG, 2X/DAY
     Route: 048
     Dates: start: 20110927
  6. CANDESARTAN CILEXETIL [Concomitant]
     Dosage: UNK
  7. ZOLPIDEM [Concomitant]
     Dosage: 5 OR 10 MG/DAY
     Route: 048
  8. PROGRAF [Concomitant]
     Dosage: 3 MG, 1X/DAY
     Route: 048
  9. LENDORMIN [Concomitant]
     Dosage: 0.25 MG, UNK
  10. MUCODYNE [Concomitant]
     Dosage: 500 MG, 2X/DAY
     Dates: start: 20110311
  11. RISEDRONATE SODIUM [Concomitant]
     Dosage: 17.5 MG, WEEKLY
     Route: 048
  12. D ALFA [Concomitant]
     Dosage: 0.5 UG, 1X/DAY
     Route: 048

REACTIONS (2)
  - COLD SWEAT [None]
  - BACK PAIN [None]
